FAERS Safety Report 18898254 (Version 1)
Quarter: 2021Q1

REPORT INFORMATION
  Report Type: Spontaneous
  Country: NL (occurrence: NL)
  Receive Date: 20210216
  Receipt Date: 20210216
  Transmission Date: 20210420
  Serious: Yes (Hospitalization)
  Sender: FDA-Public Use
  Company Number: NL-TEVA-2021-NL-1879496

PATIENT
  Age: 53 Month
  Sex: Female
  Weight: 15 kg

DRUGS (5)
  1. CYCLOFOSFAMIDE INJECTIE/INFUUS / BRAND NAME NOT SPECIFIED [Concomitant]
     Dosage: INJECTION / INFUSION, 1 MG / MG (MILLIGRAMS PER MILLIGRAM)THERAPY START DATE:ASKED BUT UNKNOWN:THERA
  2. CISPLATINE INFOPL CONC 1MG/ML / BRAND NAME NOT SPECIFIED [Suspect]
     Active Substance: CISPLATIN
     Indication: RETINOBLASTOMA
     Dosage: 72 MILLIGRAM DAILY; 72MG PER DAY
     Dates: start: 20200928, end: 20201002
  3. ONDANSETRON SMELTTABLET 8MG / BRAND NAME NOT SPECIFIED [Concomitant]
     Dosage: MELTING TABLET, 8 MG (MILLIGRAM):THERAPY START DATE:ASKED BUT UNKNOWN:THERAPY END DATE :ASKED BUT UN
  4. VINCRISTINE INJVLST 1MG/ML / BRAND NAME NOT SPECIFIED [Concomitant]
     Dosage: 1 MG/ML (MILLIGRAM PER MILLILITER):THERAPY START DATE:ASKED BUT UNKNOWN:THERAPY END DATE :ASKED BUT
  5. ETOPOSIDE INFOPL CONC 20MG/ML / EPOSIN INFUSIEVLOEISTOF CONC 20MG/ML F [Concomitant]
     Active Substance: ETOPOSIDE
     Dosage: 20 MG/ML (MILLIGRAM PER MILLILITER):THERAPY START DATE:ASKED BUT UNKNOWN:THERAPY END DATE :ASKED BUT

REACTIONS (1)
  - Electrolyte imbalance [Recovered/Resolved]

NARRATIVE: CASE EVENT DATE: 20200930
